FAERS Safety Report 15293900 (Version 1)
Quarter: 2018Q3

REPORT INFORMATION
  Report Type: Report from Study
  Country: CA (occurrence: CA)
  Receive Date: 20180820
  Receipt Date: 20180820
  Transmission Date: 20181010
  Serious: Yes (Other)
  Sender: FDA-Public Use
  Company Number: CA-ROCHE-1759026

PATIENT
  Age: 73 Year
  Sex: Female

DRUGS (16)
  1. EPREX [Concomitant]
     Active Substance: ERYTHROPOIETIN
  2. CORTISONE [Concomitant]
     Active Substance: CORTISONE\HYDROCORTISONE
  3. RITUXAN [Suspect]
     Active Substance: RITUXIMAB
     Indication: RHEUMATOID ARTHRITIS
     Dosage: LAST RITUXAN INFUSION RECEIVED ON 05/DEC/2017
     Route: 042
     Dates: start: 20150624
  4. ZOPICLONE [Concomitant]
     Active Substance: ZOPICLONE
  5. CRESTOR [Concomitant]
     Active Substance: ROSUVASTATIN CALCIUM
  6. CEPHALEXIN. [Concomitant]
     Active Substance: CEPHALEXIN
  7. AMLODIPINE [Concomitant]
     Active Substance: AMLODIPINE BESYLATE
  8. ALFACALCIDOL [Concomitant]
     Active Substance: ALFACALCIDOL
  9. FUROSEMIDE. [Concomitant]
     Active Substance: FUROSEMIDE
  10. ACETAMINOPHEN. [Concomitant]
     Active Substance: ACETAMINOPHEN
     Indication: PREMEDICATION
     Route: 048
     Dates: start: 20150624
  11. CIPROLEX [Concomitant]
     Active Substance: CIPROFLOXACIN HYDROCHLORIDE
  12. METOPROLOL. [Concomitant]
     Active Substance: METOPROLOL
  13. FOLIC ACID. [Concomitant]
     Active Substance: FOLIC ACID
  14. PLAQUENIL [Concomitant]
     Active Substance: HYDROXYCHLOROQUINE SULFATE
  15. DIPHENHYDRAMINE. [Concomitant]
     Active Substance: DIPHENHYDRAMINE
     Indication: PREMEDICATION
     Route: 048
     Dates: start: 20150624
  16. METHYLPREDNISOLONE. [Concomitant]
     Active Substance: METHYLPREDNISOLONE
     Indication: PREMEDICATION
     Route: 042
     Dates: start: 20150624

REACTIONS (3)
  - Myocardial infarction [Unknown]
  - Heart rate decreased [Unknown]
  - Blood pressure increased [Unknown]

NARRATIVE: CASE EVENT DATE: 20160512
